FAERS Safety Report 4548464-7 (Version None)
Quarter: 2004Q4

REPORT INFORMATION
  Report Type: 
  Country: None (occurrence: None)
  Receive Date: 20041227
  Receipt Date: 20041029
  Transmission Date: 20050328
  Serious: Yes (Death)
  Sender: FDA-Public Use
  Company Number: 04P-163-0279378-00

PATIENT
  Age: 74 Year
  Sex: Female
  Weight: 63.5036 kg

DRUGS (14)
  1. HUMIRA [Suspect]
     Indication: RHEUMATOID ARTHRITIS
     Dosage: 40 MG, 1 IN 2 WK
     Dates: start: 20041009, end: 20041028
  2. ULTRACET [Concomitant]
  3. PRENISONE [Concomitant]
  4. NITRO-DUR [Concomitant]
  5. MULTI-VITAMINS [Concomitant]
  6. TOCOPHEROL CONCENTRATE CAP [Concomitant]
  7. IRON [Concomitant]
  8. METHOTREXATE [Concomitant]
  9. CARVEDILOL [Concomitant]
  10. RISEDRONATE SODIUM [Concomitant]
  11. CITALOPRAM HYDROMBROMIDE [Concomitant]
  12. OMEPRAZOLE [Concomitant]
  13. SPIRONOLACTONE [Concomitant]
  14. NAPROXEN [Concomitant]

REACTIONS (1)
  - DEATH [None]
